FAERS Safety Report 24803608 (Version 1)
Quarter: 2025Q1

REPORT INFORMATION
  Report Type: Report from Study
  Country: US (occurrence: US)
  Receive Date: 20250103
  Receipt Date: 20250103
  Transmission Date: 20250409
  Serious: Yes (Other)
  Sender: TEVA
  Company Number: US-TEVA-VS-3264191

PATIENT
  Age: 56 Year
  Sex: Female

DRUGS (1)
  1. AUSTEDO [Suspect]
     Active Substance: DEUTETRABENAZINE
     Indication: Dyskinesia
     Route: 065
     Dates: start: 20241015, end: 2024

REACTIONS (7)
  - Bipolar disorder [Unknown]
  - Pain [Recovered/Resolved]
  - Headache [Recovered/Resolved]
  - Product use issue [Unknown]
  - Negative thoughts [Unknown]
  - Adverse drug reaction [Unknown]
  - Blood creatinine increased [Unknown]

NARRATIVE: CASE EVENT DATE: 20240101
